FAERS Safety Report 8185293-X (Version None)
Quarter: 2012Q1

REPORT INFORMATION
  Report Type: 
  Country: None (occurrence: None)
  Receive Date: 20120305
  Receipt Date: 20120227
  Transmission Date: 20120608
  Serious: Yes (Other)
  Sender: FDA-Public Use
  Company Number: PHHY2012JP017594

PATIENT
  Age: 71 Year
  Sex: Male
  Weight: 62 kg

DRUGS (1)
  1. ZOLEDRONIC ACID [Suspect]

REACTIONS (2)
  - HYPOCALCAEMIA [None]
  - INTESTINAL ADENOCARCINOMA [None]
